FAERS Safety Report 23403608 (Version 2)
Quarter: 2024Q1

REPORT INFORMATION
  Report Type: Spontaneous
  Country: US (occurrence: None)
  Receive Date: 20240116
  Receipt Date: 20240118
  Transmission Date: 20240410
  Serious: Yes (Hospitalization)
  Sender: FDA-Public Use
  Company Number: US-ROCHE-3489207

PATIENT
  Sex: Female

DRUGS (7)
  1. LUCENTIS [Suspect]
     Active Substance: RANIBIZUMAB
     Indication: Neovascular age-related macular degeneration
     Dosage: SHE RECEIVED LAST ON OF RANIBIZUMAB ON 11/DEC/2023.
     Route: 050
  2. ATORVASTATIN [Concomitant]
     Active Substance: ATORVASTATIN
  3. METOPROLOL SUCCINATE [Concomitant]
     Active Substance: METOPROLOL SUCCINATE
  4. CALCIUM CARBONATE [Concomitant]
     Active Substance: CALCIUM CARBONATE
  5. SODIUM CHLORIDE [Concomitant]
     Active Substance: SODIUM CHLORIDE
     Route: 048
  6. PROLIA [Concomitant]
     Active Substance: DENOSUMAB
  7. VITAMIN D3 [Concomitant]
     Active Substance: CHOLECALCIFEROL

REACTIONS (7)
  - Ill-defined disorder [Recovered/Resolved]
  - Cognitive disorder [Unknown]
  - Visual impairment [Unknown]
  - Sluggishness [Unknown]
  - Vitamin B12 deficiency [Unknown]
  - Off label use [Unknown]
  - Transient global amnesia [Recovering/Resolving]

NARRATIVE: CASE EVENT DATE: 20231201
